FAERS Safety Report 15877099 (Version 1)
Quarter: 2019Q1

REPORT INFORMATION
  Report Type: Spontaneous
  Country: DE (occurrence: DE)
  Receive Date: 20190128
  Receipt Date: 20190128
  Transmission Date: 20190417
  Serious: Yes (Other)
  Sender: FDA-Public Use
  Company Number: DE-SA-2019SA009193

PATIENT
  Age: 19 Year
  Sex: Female

DRUGS (1)
  1. FERRLECIT [Suspect]
     Active Substance: SODIUM FERRIC GLUCONATE COMPLEX
     Indication: GASTROINTESTINAL DISORDER

REACTIONS (14)
  - Arthralgia [Unknown]
  - Pain [Unknown]
  - Immune system disorder [Unknown]
  - Gastrointestinal mucosa hyperaemia [Unknown]
  - Abdominal pain [Unknown]
  - Blood iron decreased [Unknown]
  - Functional gastrointestinal disorder [Unknown]
  - Arrhythmia [Unknown]
  - Heart rate increased [Unknown]
  - Epistaxis [Unknown]
  - Malabsorption [Unknown]
  - Lip swelling [Unknown]
  - Erythema [Unknown]
  - Injection site erythema [Unknown]
